FAERS Safety Report 9616804 (Version 1)
Quarter: 2013Q4

REPORT INFORMATION
  Report Type: Spontaneous
  Country: IN (occurrence: IN)
  Receive Date: 20131011
  Receipt Date: 20131011
  Transmission Date: 20140711
  Serious: Yes (Hospitalization, Other)
  Sender: FDA-Public Use
  Company Number: IN-ABBVIE-13P-078-1154509-00

PATIENT
  Age: 12 Year
  Sex: Male

DRUGS (1)
  1. SODIUM VALPROATE [Suspect]
     Indication: CONVULSION

REACTIONS (6)
  - MELAS syndrome [Recovered/Resolved]
  - Hepatic function abnormal [Recovered/Resolved]
  - Convulsion [Recovered/Resolved]
  - Headache [Recovered/Resolved]
  - Vomiting [Recovered/Resolved]
  - Cerebral infarction [Recovered/Resolved]
